FAERS Safety Report 20615644 (Version 4)
Quarter: 2023Q1

REPORT INFORMATION
  Report Type: Report from Study
  Country: CA (occurrence: CA)
  Receive Date: 20220321
  Receipt Date: 20230117
  Transmission Date: 20230418
  Serious: Yes (Other)
  Sender: FDA-Public Use
  Company Number: CA-ABBVIE-22K-028-4320328-00

PATIENT
  Sex: Female

DRUGS (2)
  1. HUMIRA [Suspect]
     Active Substance: ADALIMUMAB
     Indication: Colitis ulcerative
     Route: 058
     Dates: start: 20190503
  2. VAXZEVRIA [Suspect]
     Active Substance: AZD-1222
     Indication: COVID-19 prophylaxis
     Dosage: TIME INTERVAL: 1 TOTAL: ONE IN ONCE?FIRST DOSE?CONTAINS 10 DOSES OF 0.5ML
     Route: 030

REACTIONS (4)
  - Immunisation reaction [Unknown]
  - Anal cancer [Unknown]
  - Colon cancer stage I [Unknown]
  - Rectal adenocarcinoma [Unknown]
